FAERS Safety Report 5097511-5 (Version None)
Quarter: 2006Q3

REPORT INFORMATION
  Report Type: 
  Country: None (occurrence: None)
  Receive Date: 20060901
  Receipt Date: 20060822
  Transmission Date: 20061208
  Serious: Yes (Hospitalization)
  Sender: FDA-Public Use
  Company Number: JP200607003135

PATIENT
  Age: 60 Year
  Sex: Male

DRUGS (11)
  1. ZYPREXA [Suspect]
     Indication: SCHIZOPHRENIA
     Dosage: 10 MG, DAILY (1/D), ORAL
     Route: 048
     Dates: start: 20020116
  2. LODOPIN (ZOTEPINE) GRAIN [Concomitant]
  3. SERENACE (HALOPERIDOL) GRAIN [Concomitant]
  4. TASMOLIN (BIPERIDEN) POWDER [Concomitant]
  5. DIHYDERGOT (DIHYDROERGOTAMINE MESILATE) TABLET [Concomitant]
  6. METLIGINE (MIDODRINE HYDROCHLORIDE) TABLET [Concomitant]
  7. MAGNESIUM OXIDE (MAGNESIUM OXIDE) GRAIN [Concomitant]
  8. BESACOLIN (BETHANECHOL CHLORIDE) POWDER [Concomitant]
  9. GLORIAMIN (AZULENE SODIUM SULFONATE, LEVOGLUTAMIDE) GRAIN [Concomitant]
  10. LEVOTOMIN (LEVOMEPROMAZINE  MALEATE) POWDER [Concomitant]
  11. AMOBAN (ZOPICLONE) TABLET [Concomitant]

REACTIONS (7)
  - ANAEMIA [None]
  - ANOREXIA [None]
  - BLOOD ALKALINE PHOSPHATASE INCREASED [None]
  - GASTRIC ULCER HAEMORRHAGE [None]
  - HYPERGLYCAEMIA [None]
  - INSOMNIA [None]
  - RED BLOOD CELL COUNT INCREASED [None]
